FAERS Safety Report 4693951-4 (Version None)
Quarter: 2005Q2

REPORT INFORMATION
  Report Type: 
  Country: None (occurrence: None)
  Receive Date: 20050616
  Receipt Date: 20050602
  Transmission Date: 20051028
  Serious: Yes (Death, Hospitalization)
  Sender: FDA-Public Use
  Company Number: WAES 0506USA01520

PATIENT
  Age: 80 Year
  Sex: Female

DRUGS (2)
  1. ZOCOR [Suspect]
     Dosage: 40 MG/DAILY/PO
     Route: 048
  2. PRINIVIL [Concomitant]

REACTIONS (4)
  - COAGULOPATHY [None]
  - HEPATIC FAILURE [None]
  - MULTI-ORGAN FAILURE [None]
  - MYOCARDIAL INFARCTION [None]
